FAERS Safety Report 20686177 (Version 2)
Quarter: 2022Q2

REPORT INFORMATION
  Report Type: Spontaneous
  Country: US (occurrence: None)
  Receive Date: 20220407
  Receipt Date: 20220428
  Transmission Date: 20220721
  Serious: No
  Sender: FDA-Public Use
  Company Number: 2022A114135

PATIENT
  Age: 27288 Day
  Sex: Male

DRUGS (3)
  1. BYDUREON BCISE [Suspect]
     Active Substance: EXENATIDE
     Indication: Diabetes mellitus
     Route: 058
  2. BYDUREON [Suspect]
     Active Substance: EXENATIDE
     Indication: Diabetes mellitus
     Route: 058
  3. BYETTA [Suspect]
     Active Substance: EXENATIDE
     Indication: Diabetes mellitus
     Route: 065

REACTIONS (8)
  - Injection site pain [Unknown]
  - Hypersensitivity [Unknown]
  - Wheezing [Unknown]
  - Crying [Unknown]
  - Rhinorrhoea [Unknown]
  - Body height abnormal [Unknown]
  - Paraesthesia [Unknown]
  - Device leakage [Unknown]

NARRATIVE: CASE EVENT DATE: 20220311
